FAERS Safety Report 5776454-5 (Version None)
Quarter: 2008Q2

REPORT INFORMATION
  Report Type: 
  Country: None (occurrence: None)
  Receive Date: 20080616
  Receipt Date: 20080603
  Transmission Date: 20081010
  Serious: Yes (Life-Threatening, Hospitalization)
  Sender: FDA-Public Use
  Company Number: B0524565A

PATIENT
  Age: 19 Year
  Sex: Male

DRUGS (5)
  1. LAMIVUDINE [Suspect]
     Indication: HIV INFECTION
  2. STAVUDINE [Suspect]
     Indication: HIV INFECTION
  3. INDINIVIR SULFATE [Suspect]
     Indication: HIV INFECTION
  4. RITONAVIR (FORMULATION UNKNOWN) (RITONAVIR) [Suspect]
     Indication: HIV INFECTION
  5. PREDNISONE [Suspect]
     Indication: KAPOSI'S SARCOMA
     Dosage: 20 MG / TWICE A DAY /

REACTIONS (14)
  - CD4 LYMPHOCYTES INCREASED [None]
  - DIARRHOEA [None]
  - EPISTAXIS [None]
  - EYE HAEMORRHAGE [None]
  - FACE OEDEMA [None]
  - IMMUNE RECONSTITUTION SYNDROME [None]
  - KAPOSI'S SARCOMA [None]
  - LYMPHOEDEMA [None]
  - MOUTH HAEMORRHAGE [None]
  - MUCOCUTANEOUS RASH [None]
  - OTITIS MEDIA [None]
  - STREPTOCOCCAL INFECTION [None]
  - THROMBOCYTOPENIA [None]
  - VOMITING [None]
